FAERS Safety Report 7587377-3 (Version None)
Quarter: 2011Q3

REPORT INFORMATION
  Report Type: 
  Country: None (occurrence: None)
  Receive Date: 20110701
  Receipt Date: 20110627
  Transmission Date: 20111222
  Serious: Yes (Death, Life-Threatening, Hospitalization)
  Sender: FDA-Public Use
  Company Number: JP-ASTRAZENECA-2011SE38079

PATIENT
  Age: 19 Year
  Sex: Female

DRUGS (3)
  1. CARBOCAIN [Suspect]
     Indication: EPIDURAL ANAESTHESIA
     Route: 065
     Dates: start: 20110620, end: 20110622
  2. HALOPERIDOL [Concomitant]
     Indication: EPILEPSY
  3. NITRAZEPAM [Concomitant]
     Indication: EPILEPSY
     Route: 065

REACTIONS (1)
  - CARDIO-RESPIRATORY ARREST [None]
